FAERS Safety Report 14943600 (Version 1)
Quarter: 2018Q2

REPORT INFORMATION
  Report Type: Spontaneous
  Country: JP (occurrence: JP)
  Receive Date: 20180528
  Receipt Date: 20180528
  Transmission Date: 20180711
  Serious: Yes (Death)
  Sender: FDA-Public Use
  Company Number: PHBS1998JP21259

PATIENT
  Age: 63 Year
  Sex: Female

DRUGS (15)
  1. NILVADIPINE [Concomitant]
     Active Substance: NILVADIPINE
     Indication: HYPERTENSION
     Route: 065
  2. FUROSEMIDE. [Concomitant]
     Active Substance: FUROSEMIDE
     Indication: HYPERTENSION
     Route: 065
  3. SANDIMMUN [Suspect]
     Active Substance: CYCLOSPORINE
     Dosage: 200 MG, QD
     Route: 048
     Dates: start: 19910704, end: 19910707
  4. DILAZEP [Concomitant]
     Active Substance: DILAZEP
     Indication: NEPHROTIC SYNDROME
     Dosage: UNK
     Route: 065
  5. CEFMETAZOLE [Concomitant]
     Active Substance: CEFMETAZOLE
     Indication: PRODUCT USED FOR UNKNOWN INDICATION
     Route: 065
  6. IMMUNOGLOBULIN HUMAN NORMAL [Concomitant]
     Active Substance: HUMAN IMMUNOGLOBULIN G
     Indication: PRODUCT USED FOR UNKNOWN INDICATION
     Route: 065
  7. SANDIMMUN [Suspect]
     Active Substance: CYCLOSPORINE
     Dosage: 300 MG, UNK
     Route: 065
  8. ORNOPROSTIL [Concomitant]
     Indication: GASTRIC HAEMORRHAGE
     Dosage: UNK
     Route: 065
  9. SANDIMMUN [Suspect]
     Active Substance: CYCLOSPORINE
     Dosage: 300 MG, QD
     Route: 048
     Dates: start: 19910619, end: 19910703
  10. DIPYRIDAMOLE. [Concomitant]
     Active Substance: DIPYRIDAMOLE
     Indication: NEPHROTIC SYNDROME
     Route: 065
  11. HEPARIN SODIUM. [Concomitant]
     Active Substance: HEPARIN SODIUM
     Indication: PRODUCT USED FOR UNKNOWN INDICATION
     Route: 065
  12. SANDIMMUN [Suspect]
     Active Substance: CYCLOSPORINE
     Indication: NEPHROTIC SYNDROME
     Dosage: 200 MG, UNK
     Route: 065
  13. PREDNISOLONE. [Concomitant]
     Active Substance: PREDNISOLONE
     Indication: NEPHROTIC SYNDROME
     Route: 065
  14. URSODEOXYCHOLIC ACID [Concomitant]
     Active Substance: URSODIOL
     Indication: PRODUCT USED FOR UNKNOWN INDICATION
     Route: 065
  15. OMEPRAZOLE. [Concomitant]
     Active Substance: OMEPRAZOLE
     Indication: GASTRIC HAEMORRHAGE
     Route: 065

REACTIONS (2)
  - Leukopenia [Fatal]
  - Thrombocytopenia [Fatal]

NARRATIVE: CASE EVENT DATE: 19910705
